FAERS Safety Report 8133892-3 (Version None)
Quarter: 2012Q1

REPORT INFORMATION
  Report Type: 
  Country: None (occurrence: None)
  Receive Date: 20120213
  Receipt Date: 20120202
  Transmission Date: 20120608
  Serious: Yes (Hospitalization)
  Sender: FDA-Public Use
  Company Number: FR-ELI_LILLY_AND_COMPANY-FR201202000622

PATIENT
  Age: 72 Year
  Sex: Female

DRUGS (4)
  1. FORTEO [Suspect]
     Indication: OSTEOPOROSIS
     Dosage: 20 UG, QD
     Route: 058
     Dates: start: 20111107
  2. ATENOLOL [Concomitant]
     Indication: HYPERTENSION
  3. TRAMADOL HCL [Concomitant]
     Indication: BONE PAIN
  4. ACETAMINOPHEN [Concomitant]
     Indication: BONE PAIN
     Dosage: UNK, PRN

REACTIONS (3)
  - CARDIAC PACEMAKER INSERTION [None]
  - DEPRESSED MOOD [None]
  - DYSPNOEA [None]
